FAERS Safety Report 16133156 (Version 1)
Quarter: 2019Q1

REPORT INFORMATION
  Report Type: Spontaneous
  Country: US (occurrence: US)
  Receive Date: 20190226
  Receipt Date: 20190226
  Transmission Date: 20190418
  Serious: No
  Sender: FDA-Public Use
  Company Number: None

PATIENT
  Age: 48 Year
  Sex: Male

DRUGS (11)
  1. TACROLIMUS CAPSULE 5MG [Suspect]
     Active Substance: TACROLIMUS
     Indication: RENAL TRANSPLANT
     Dosage: ?          OTHER DOSE:1 CAPSULE;?
     Route: 048
     Dates: start: 20170602
  2. LIPITOR [Concomitant]
     Active Substance: ATORVASTATIN CALCIUM
  3. CARVEDILOL. [Concomitant]
     Active Substance: CARVEDILOL
  4. PREDNISONE. [Concomitant]
     Active Substance: PREDNISONE
  5. MYCOPHENOLIC TAB DR 360MG [Suspect]
     Active Substance: MYCOPHENOLIC ACID
     Indication: RENAL TRANSPLANT
     Dosage: ?          OTHER DOSE:1 TABLET;?
     Route: 048
     Dates: start: 20170707
  6. MULTIVITAMIN DAILY [Concomitant]
  7. OMEPRAZOLE. [Concomitant]
     Active Substance: OMEPRAZOLE
  8. METFORMIN [Concomitant]
     Active Substance: METFORMIN HYDROCHLORIDE
  9. LISINOPRIL. [Concomitant]
     Active Substance: LISINOPRIL
  10. CLONIDINE. [Concomitant]
     Active Substance: CLONIDINE
  11. VITAMIN D3 [Concomitant]
     Active Substance: CHOLECALCIFEROL

REACTIONS (1)
  - Sinusitis [None]
